FAERS Safety Report 18810451 (Version 3)
Quarter: 2021Q1

REPORT INFORMATION
  Report Type: Spontaneous
  Country: US (occurrence: US)
  Receive Date: 20210129
  Receipt Date: 20210202
  Transmission Date: 20210419
  Serious: No
  Sender: FDA-Public Use
  Company Number: US-PFIZER INC-2021057333

PATIENT
  Age: 60 Year
  Sex: Female

DRUGS (4)
  1. XANAX [Suspect]
     Active Substance: ALPRAZOLAM
     Indication: PSYCHOPATHIC PERSONALITY
  2. XANAX [Suspect]
     Active Substance: ALPRAZOLAM
     Indication: ANXIETY
  3. XANAX [Suspect]
     Active Substance: ALPRAZOLAM
     Indication: DEPRESSION
     Dosage: 0.5 EVERY DAY (DOSAGE UNITS NOT PROVIDED)
     Dates: start: 2009
  4. XANAX [Suspect]
     Active Substance: ALPRAZOLAM
     Indication: BIPOLAR DISORDER
     Dosage: UNK UNK, 2X/DAY (TAKE HALF BY MOUTH AS NEEDED TWICE A DAY)

REACTIONS (8)
  - Counterfeit product administered [Unknown]
  - Product colour issue [Unknown]
  - Suspected counterfeit product [Unknown]
  - Intentional product use issue [Unknown]
  - Aggression [Unknown]
  - Drug ineffective [Unknown]
  - Product taste abnormal [Unknown]
  - Anger [Unknown]

NARRATIVE: CASE EVENT DATE: 202101
